FAERS Safety Report 8168110-3 (Version None)
Quarter: 2012Q1

REPORT INFORMATION
  Report Type: 
  Country: None (occurrence: None)
  Receive Date: 20120227
  Receipt Date: 20120216
  Transmission Date: 20120608
  Serious: Yes (Death, Other)
  Sender: FDA-Public Use
  Company Number: GB-ROCHE-GNE313376

PATIENT
  Sex: Male

DRUGS (1)
  1. LUCENTIS [Suspect]
     Indication: PRODUCT USED FOR UNKNOWN INDICATION
     Dosage: UNK
     Route: 050

REACTIONS (8)
  - INTRADUCTAL PAPILLARY MUCINOUS NEOPLASM [None]
  - ADENOCARCINOMA [None]
  - METASTASES TO BONE [None]
  - ARTHRALGIA [None]
  - BONE LESION [None]
  - DEATH [None]
  - DECREASED APPETITE [None]
  - BILE DUCT CANCER [None]
